FAERS Safety Report 7434982-0 (Version None)
Quarter: 2011Q2

REPORT INFORMATION
  Report Type: 
  Country: None (occurrence: None)
  Receive Date: 20110415
  Receipt Date: 20110407
  Transmission Date: 20111010
  Serious: Yes (Life-Threatening, Hospitalization, Other)
  Sender: FDA-Public Use
  Company Number: 2010AC000554

PATIENT
  Age: 76 Year
  Sex: Female
  Weight: 58.9676 kg

DRUGS (31)
  1. K-DUR [Concomitant]
  2. VITAMIN K TAB [Concomitant]
  3. DARVOCET [Concomitant]
  4. DIGIBIND [Concomitant]
  5. LOVENOX [Concomitant]
  6. BRETHINE [Concomitant]
  7. SUBLIMAZE PRESERVATIVE FREE [Concomitant]
  8. ATROPINE [Concomitant]
  9. PROTONIX [Concomitant]
  10. NICOBID [Concomitant]
  11. ANCEF [Concomitant]
  12. COUMADIN [Concomitant]
  13. DIGIBIND [Concomitant]
  14. PERCOCET [Concomitant]
  15. MAGNESIUM OXIDE [Concomitant]
  16. GENTAMICIN [Concomitant]
  17. DIPRIVAN [Concomitant]
  18. GAS-EX [Concomitant]
  19. DIGOXIN [Suspect]
     Indication: ATRIAL FIBRILLATION
     Dosage: 0.25 MG; QD; PO
     Route: 048
     Dates: start: 20080110, end: 20080202
  20. COREG [Concomitant]
  21. ALDACTONE [Concomitant]
  22. ZOFRAN [Concomitant]
  23. VERSED [Concomitant]
  24. MAGNESIUM SULFATE [Concomitant]
  25. PROMETHAZINE [Concomitant]
  26. AMBIEN CR [Concomitant]
  27. MYLICON [Concomitant]
  28. VASOTEC [Concomitant]
  29. CORDARONE [Concomitant]
  30. DOPAMINE HCL [Concomitant]
  31. SYNTHROID [Concomitant]

REACTIONS (23)
  - INJURY [None]
  - CARDIOACTIVE DRUG LEVEL INCREASED [None]
  - MITRAL VALVE CALCIFICATION [None]
  - CARDIAC FAILURE CONGESTIVE [None]
  - LOSS OF CONSCIOUSNESS [None]
  - BLOOD SODIUM DECREASED [None]
  - CORNEAL OPACITY [None]
  - TOXICITY TO VARIOUS AGENTS [None]
  - RENAL FAILURE [None]
  - SINUS BRADYCARDIA [None]
  - PULMONARY FIBROSIS [None]
  - ARTERIOSCLEROSIS CORONARY ARTERY [None]
  - ECONOMIC PROBLEM [None]
  - BLOOD PRESSURE DECREASED [None]
  - TOOTHACHE [None]
  - AORTIC STENOSIS [None]
  - PERICARDIAL EFFUSION [None]
  - ATRIAL FIBRILLATION [None]
  - AORTIC ARTERIOSCLEROSIS [None]
  - MYOCARDIAL ISCHAEMIA [None]
  - CARDIOMYOPATHY [None]
  - CHRONIC OBSTRUCTIVE PULMONARY DISEASE [None]
  - NODAL RHYTHM [None]
